FAERS Safety Report 9828294 (Version 1)
Quarter: 2014Q1

REPORT INFORMATION
  Report Type: Report from Study
  Country: US (occurrence: US)
  Receive Date: 20140117
  Receipt Date: 20140117
  Transmission Date: 20141002
  Serious: Yes (Hospitalization, Other)
  Sender: FDA-Public Use
  Company Number: US-ABBVIE-14P-163-1187868-00

PATIENT
  Age: 60 Year
  Sex: Female
  Weight: 56.75 kg

DRUGS (9)
  1. HUMIRA [Suspect]
     Indication: RHEUMATOID ARTHRITIS
     Route: 058
     Dates: start: 2002
  2. BACTRIM [Suspect]
     Indication: STAPHYLOCOCCAL INFECTION
     Dates: start: 201312, end: 201401
  3. UNKNOWN MEDICATION [Suspect]
     Indication: PRODUCT USED FOR UNKNOWN INDICATION
  4. SIMVASTATIN [Concomitant]
     Indication: BLOOD CHOLESTEROL INCREASED
  5. URSODIOL [Concomitant]
     Indication: HEPATIC ENZYME INCREASED
  6. PREDNISONE [Concomitant]
     Indication: RHEUMATOID ARTHRITIS
  7. HYDROCODONE [Concomitant]
     Indication: RHEUMATOID ARTHRITIS
  8. ALENDRONATE [Concomitant]
     Indication: HEPATIC ENZYME INCREASED
  9. CITRACAL [Concomitant]
     Indication: MINERAL SUPPLEMENTATION

REACTIONS (17)
  - Stress cardiomyopathy [Recovered/Resolved]
  - Staphylococcal infection [Recovering/Resolving]
  - Ulcer haemorrhage [Not Recovered/Not Resolved]
  - Hyperkeratosis [Not Recovered/Not Resolved]
  - Erythema [Not Recovered/Not Resolved]
  - Pain in extremity [Recovering/Resolving]
  - Localised infection [Recovering/Resolving]
  - Local swelling [Recovering/Resolving]
  - Nausea [Recovered/Resolved]
  - Vomiting [Recovered/Resolved]
  - Decreased appetite [Recovered/Resolved]
  - Dyspnoea [Not Recovered/Not Resolved]
  - Dyspnoea [Not Recovered/Not Resolved]
  - Stress [Unknown]
  - Gait disturbance [Unknown]
  - Dyspnoea [Unknown]
  - Rheumatoid arthritis [Unknown]
